FAERS Safety Report 10269767 (Version 2)
Quarter: 2014Q3

REPORT INFORMATION
  Report Type: Spontaneous
  Country: US (occurrence: US)
  Receive Date: 20140701
  Receipt Date: 20140807
  Transmission Date: 20150326
  Serious: No
  Sender: FDA-Public Use
  Company Number: US-JNJFOC-20140612848

PATIENT
  Age: 70 Year
  Sex: Female
  Weight: 85.28 kg

DRUGS (2)
  1. DURAGESIC [Suspect]
     Active Substance: FENTANYL
     Indication: BACK PAIN
     Route: 062
     Dates: start: 201405
  2. MORPHINE [Concomitant]
     Active Substance: MORPHINE
     Indication: PAIN
     Route: 048

REACTIONS (7)
  - Wrong technique in drug usage process [Unknown]
  - Product quality issue [Unknown]
  - Drug dose omission [Unknown]
  - Drug effect decreased [Unknown]
  - Abnormal behaviour [Not Recovered/Not Resolved]
  - Overdose [Unknown]
  - Euphoric mood [Not Recovered/Not Resolved]

NARRATIVE: CASE EVENT DATE: 201406
